FAERS Safety Report 12379372 (Version 1)
Quarter: 2016Q2

REPORT INFORMATION
  Report Type: Spontaneous
  Country: US (occurrence: US)
  Receive Date: 20160517
  Receipt Date: 20160517
  Transmission Date: 20160815
  Serious: No
  Sender: FDA-Public Use
  Company Number: US-RELYPSA-RLY2016000432

PATIENT

DRUGS (31)
  1. BENADRYL ALLERGY/COLD [Concomitant]
  2. FISH OIL [Concomitant]
     Active Substance: FISH OIL
  3. HYDRALAZINE HCL [Concomitant]
     Active Substance: HYDRALAZINE HYDROCHLORIDE
  4. METFORMIN HCL [Concomitant]
     Active Substance: METFORMIN HYDROCHLORIDE
  5. METOLAZONE. [Concomitant]
     Active Substance: METOLAZONE
  6. MOTILIUM [Concomitant]
     Active Substance: DOMPERIDONE
  7. VITAMIN B12 [Concomitant]
     Active Substance: CYANOCOBALAMIN
  8. ASTAXANTHIN [Concomitant]
  9. DICLOFENAC SODIUM. [Concomitant]
     Active Substance: DICLOFENAC SODIUM
  10. NIFEDIPINE. [Concomitant]
     Active Substance: NIFEDIPINE
  11. REPAGLINIDE. [Concomitant]
     Active Substance: REPAGLINIDE
  12. VELTASSA [Suspect]
     Active Substance: PATIROMER
     Indication: HYPERKALAEMIA
     Dosage: 8.4 G, QD
     Route: 048
     Dates: start: 20160405
  13. ADDERALL [Concomitant]
     Active Substance: AMPHETAMINE ASPARTATE\AMPHETAMINE SULFATE\DEXTROAMPHETAMINE SACCHARATE\DEXTROAMPHETAMINE SULFATE
  14. CENTRUM SILVER                     /02363801/ [Concomitant]
     Active Substance: MINERALS\VITAMINS
  15. COREG [Concomitant]
     Active Substance: CARVEDILOL
  16. MIRALAX [Concomitant]
     Active Substance: POLYETHYLENE GLYCOL 3350
  17. CYMBALTA [Concomitant]
     Active Substance: DULOXETINE HYDROCHLORIDE
  18. IRON [Concomitant]
     Active Substance: IRON
  19. LIOTHYRONINE SODIUM. [Concomitant]
     Active Substance: LIOTHYRONINE SODIUM
  20. LANSOPRAZOLE. [Concomitant]
     Active Substance: LANSOPRAZOLE
  21. MAGNESIUM [Concomitant]
     Active Substance: MAGNESIUM
  22. RESVERATROL [Concomitant]
     Active Substance: RESVERATROL
  23. TYLENOL EXTRA STRENGTH [Concomitant]
     Active Substance: ACETAMINOPHEN
  24. ATORVASTATIN CALCIUM. [Concomitant]
     Active Substance: ATORVASTATIN CALCIUM
  25. COENZYME Q10 [Concomitant]
     Active Substance: UBIDECARENONE
  26. LORAZEPAM. [Concomitant]
     Active Substance: LORAZEPAM
  27. ABILIFY [Concomitant]
     Active Substance: ARIPIPRAZOLE
  28. ASPIRIN 81 [Concomitant]
     Active Substance: ASPIRIN
  29. FENOFIBRATE. [Concomitant]
     Active Substance: FENOFIBRATE
  30. FUROSEMIDE. [Concomitant]
     Active Substance: FUROSEMIDE
  31. SALONPAS                           /00735901/ [Concomitant]

REACTIONS (4)
  - Nausea [Unknown]
  - Vomiting [Unknown]
  - Drug ineffective [Unknown]
  - Constipation [Unknown]
